FAERS Safety Report 9914796 (Version 1)
Quarter: 2014Q1

REPORT INFORMATION
  Report Type: Report from Study
  Country: GR (occurrence: GR)
  Receive Date: 20140220
  Receipt Date: 20140220
  Transmission Date: 20141002
  Serious: Yes (Hospitalization)
  Sender: FDA-Public Use
  Company Number: GR-US-EMD SERONO, INC.-7270215

PATIENT
  Age: 7 Year
  Sex: Female
  Weight: 33 kg

DRUGS (3)
  1. SAIZEN [Suspect]
     Indication: GROWTH HORMONE DEFICIENCY
     Route: 058
     Dates: start: 201007, end: 20110419
  2. SAIZEN [Suspect]
     Route: 058
     Dates: start: 20110424
  3. T4 [Concomitant]
     Indication: HYPOTHYROIDISM
     Route: 048
     Dates: start: 2007

REACTIONS (1)
  - Adrenal insufficiency [Recovering/Resolving]
